FAERS Safety Report 4770629-X (Version None)
Quarter: 2005Q3

REPORT INFORMATION
  Report Type: 
  Country: None (occurrence: None)
  Receive Date: 20050915
  Receipt Date: 20050906
  Transmission Date: 20060218
  Serious: Yes (Hospitalization)
  Sender: FDA-Public Use
  Company Number: US-JNJFOC-20050902164

PATIENT
  Sex: Female
  Weight: 63.5 kg

DRUGS (3)
  1. DURAGESIC-100 [Suspect]
     Route: 062
  2. LORCET-HD [Concomitant]
     Route: 048
  3. LORCET-HD [Concomitant]
     Indication: PAIN
     Dosage: 10/650, 1 IN 6 HOUR(S) AS NECESSARY
     Route: 048

REACTIONS (2)
  - POLYTRAUMATISM [None]
  - ROAD TRAFFIC ACCIDENT [None]
